FAERS Safety Report 19190311 (Version 1)
Quarter: 2021Q2

REPORT INFORMATION
  Report Type: Spontaneous
  Country: US (occurrence: US)
  Receive Date: 20210428
  Receipt Date: 20210428
  Transmission Date: 20210717
  Serious: No
  Sender: FDA-Public Use
  Company Number: US-GILEAD-2021-0523823

PATIENT
  Sex: Female

DRUGS (4)
  1. SOFOSBUVIR;VELPATASVIR [Suspect]
     Active Substance: SOFOSBUVIR\VELPATASVIR
     Indication: CHRONIC HEPATITIS C
     Dosage: 1 DOSAGE FORM, QD
     Route: 048
     Dates: start: 202012
  2. GABAPENTIN. [Concomitant]
     Active Substance: GABAPENTIN
  3. ZYPREXA [Concomitant]
     Active Substance: OLANZAPINE
  4. PAXIL [PIROXICAM] [Concomitant]
     Active Substance: PIROXICAM

REACTIONS (1)
  - Product dose omission issue [Unknown]
